FAERS Safety Report 4949907-7 (Version None)
Quarter: 2006Q1

REPORT INFORMATION
  Report Type: 
  Country: None (occurrence: None)
  Receive Date: 20060127
  Receipt Date: 20050407
  Transmission Date: 20060701
  Serious: Yes (Hospitalization)
  Sender: FDA-Public Use
  Company Number: 05-04-0569

PATIENT
  Sex: Male

DRUGS (1)
  1. CLOZAPINE [Suspect]
     Indication: IMPULSE-CONTROL DISORDER
     Dosage: 25-225MG QD,  ORAL
     Route: 048
     Dates: start: 20000801, end: 20050201

REACTIONS (1)
  - GASTROINTESTINAL DISORDER [None]
